FAERS Safety Report 9356694 (Version 2)
Quarter: 2013Q3

REPORT INFORMATION
  Report Type: Spontaneous
  Country: US (occurrence: US)
  Receive Date: 20130619
  Receipt Date: 20130726
  Transmission Date: 20140515
  Serious: Yes (Hospitalization)
  Sender: FDA-Public Use
  Company Number: US-009507513-1306USA006699

PATIENT
  Sex: Male

DRUGS (4)
  1. DULERA [Suspect]
     Dosage: 2 PUFFS / TWICE DAILY
     Dates: start: 2011
  2. SINGULAIR [Concomitant]
     Route: 048
  3. PROAIR (ALBUTEROL SULFATE) [Concomitant]
  4. ZYRTEC [Concomitant]

REACTIONS (4)
  - Vomiting [Recovering/Resolving]
  - Adrenal suppression [Recovering/Resolving]
  - Growth retardation [Recovering/Resolving]
  - Mental status changes [Recovering/Resolving]
